FAERS Safety Report 25639050 (Version 1)
Quarter: 2025Q3

REPORT INFORMATION
  Report Type: Spontaneous
  Country: GB (occurrence: GB)
  Receive Date: 20250804
  Receipt Date: 20250804
  Transmission Date: 20251020
  Serious: Yes (Other)
  Sender: MYLAN
  Company Number: None

PATIENT
  Age: 85 Year
  Sex: Female
  Weight: 52 kg

DRUGS (44)
  1. PHENYTOIN [Suspect]
     Active Substance: PHENYTOIN
     Indication: Partial seizures
     Dosage: 450 MILLIGRAM, QD
  2. PHENYTOIN [Suspect]
     Active Substance: PHENYTOIN
     Dosage: 450 MILLIGRAM, QD
  3. PHENYTOIN [Suspect]
     Active Substance: PHENYTOIN
     Dosage: 450 MILLIGRAM, QD
     Route: 065
  4. PHENYTOIN [Suspect]
     Active Substance: PHENYTOIN
     Dosage: 450 MILLIGRAM, QD
     Route: 065
  5. PHENYTOIN [Suspect]
     Active Substance: PHENYTOIN
  6. PHENYTOIN [Suspect]
     Active Substance: PHENYTOIN
  7. PHENYTOIN [Suspect]
     Active Substance: PHENYTOIN
     Route: 065
  8. PHENYTOIN [Suspect]
     Active Substance: PHENYTOIN
     Route: 065
  9. CHOLECALCIFEROL [Concomitant]
     Active Substance: CHOLECALCIFEROL
     Dosage: UNK, QD (8000 UNITS DAILY)
  10. CHOLECALCIFEROL [Concomitant]
     Active Substance: CHOLECALCIFEROL
     Dosage: UNK, QD (8000 UNITS DAILY)
     Route: 065
  11. CHOLECALCIFEROL [Concomitant]
     Active Substance: CHOLECALCIFEROL
     Dosage: UNK, QD (8000 UNITS DAILY)
     Route: 065
  12. CHOLECALCIFEROL [Concomitant]
     Active Substance: CHOLECALCIFEROL
     Dosage: UNK, QD (8000 UNITS DAILY)
  13. PREDNISOLONE [Concomitant]
     Active Substance: PREDNISOLONE
     Indication: Central nervous system vasculitis
  14. PREDNISOLONE [Concomitant]
     Active Substance: PREDNISOLONE
     Route: 065
  15. PREDNISOLONE [Concomitant]
     Active Substance: PREDNISOLONE
     Route: 065
  16. PREDNISOLONE [Concomitant]
     Active Substance: PREDNISOLONE
  17. ALLOPURINOL [Concomitant]
     Active Substance: ALLOPURINOL
     Indication: Gout
  18. ALLOPURINOL [Concomitant]
     Active Substance: ALLOPURINOL
     Route: 065
  19. ALLOPURINOL [Concomitant]
     Active Substance: ALLOPURINOL
     Route: 065
  20. ALLOPURINOL [Concomitant]
     Active Substance: ALLOPURINOL
  21. CLOBAZAM [Concomitant]
     Active Substance: CLOBAZAM
     Indication: Seizure
  22. CLOBAZAM [Concomitant]
     Active Substance: CLOBAZAM
     Route: 065
  23. CLOBAZAM [Concomitant]
     Active Substance: CLOBAZAM
     Route: 065
  24. CLOBAZAM [Concomitant]
     Active Substance: CLOBAZAM
  25. FAMOTIDINE [Concomitant]
     Active Substance: FAMOTIDINE
  26. FAMOTIDINE [Concomitant]
     Active Substance: FAMOTIDINE
     Route: 065
  27. FAMOTIDINE [Concomitant]
     Active Substance: FAMOTIDINE
     Route: 065
  28. FAMOTIDINE [Concomitant]
     Active Substance: FAMOTIDINE
  29. LAMOTRIGINE [Concomitant]
     Active Substance: LAMOTRIGINE
  30. LAMOTRIGINE [Concomitant]
     Active Substance: LAMOTRIGINE
     Route: 065
  31. LAMOTRIGINE [Concomitant]
     Active Substance: LAMOTRIGINE
     Route: 065
  32. LAMOTRIGINE [Concomitant]
     Active Substance: LAMOTRIGINE
  33. NEBIVOLOL [Concomitant]
     Active Substance: NEBIVOLOL
  34. NEBIVOLOL [Concomitant]
     Active Substance: NEBIVOLOL
     Route: 065
  35. NEBIVOLOL [Concomitant]
     Active Substance: NEBIVOLOL
     Route: 065
  36. NEBIVOLOL [Concomitant]
     Active Substance: NEBIVOLOL
  37. LEVETIRACETAM [Concomitant]
     Active Substance: LEVETIRACETAM
  38. LEVETIRACETAM [Concomitant]
     Active Substance: LEVETIRACETAM
     Route: 065
  39. LEVETIRACETAM [Concomitant]
     Active Substance: LEVETIRACETAM
     Route: 065
  40. LEVETIRACETAM [Concomitant]
     Active Substance: LEVETIRACETAM
  41. MIRTAZAPINE [Concomitant]
     Active Substance: MIRTAZAPINE
  42. MIRTAZAPINE [Concomitant]
     Active Substance: MIRTAZAPINE
     Route: 065
  43. MIRTAZAPINE [Concomitant]
     Active Substance: MIRTAZAPINE
     Route: 065
  44. MIRTAZAPINE [Concomitant]
     Active Substance: MIRTAZAPINE

REACTIONS (1)
  - Toxicity to various agents [Recovered/Resolved]

NARRATIVE: CASE EVENT DATE: 20250710
